FAERS Safety Report 8622467-5 (Version None)
Quarter: 2012Q3

REPORT INFORMATION
  Report Type: 
  Country: None (occurrence: None)
  Receive Date: 20120827
  Receipt Date: 20120813
  Transmission Date: 20120928
  Serious: Yes (Death)
  Sender: FDA-Public Use
  Company Number: US-009507513-1208USA003188

PATIENT

DRUGS (1)
  1. DULERA [Suspect]
     Route: 055

REACTIONS (1)
  - ASTHMA [None]
